FAERS Safety Report 9413248 (Version 2)
Quarter: 2013Q3

REPORT INFORMATION
  Report Type: Report from Study
  Country: DE (occurrence: DE)
  Receive Date: 20130722
  Receipt Date: 20130903
  Transmission Date: 20140515
  Serious: Yes (Hospitalization)
  Sender: FDA-Public Use
  Company Number: DE-TEVA-418505GER

PATIENT
  Sex: Female

DRUGS (19)
  1. DOXORUBICIN [Suspect]
     Indication: B-CELL LYMPHOMA
     Route: 042
     Dates: start: 20130410
  2. VINCRISTINE [Suspect]
     Indication: B-CELL LYMPHOMA
     Route: 042
     Dates: start: 20130410
  3. PREDNISONE [Suspect]
     Indication: B-CELL LYMPHOMA
     Dosage: 600 MG 6 DAYS PER CYCLE
     Route: 065
     Dates: start: 20130409
  4. METHOTREXATE [Suspect]
     Indication: B-CELL LYMPHOMA
     Dosage: 300 MILLIGRAM DAILY;
     Route: 042
     Dates: start: 20130321, end: 20130321
  5. RITUXIMAB [Suspect]
     Indication: B-CELL LYMPHOMA
     Route: 042
     Dates: start: 20130319
  6. PEGFILGRASTIM [Suspect]
     Route: 058
     Dates: start: 20130412
  7. CYCLOPHOSPHAMIDE [Suspect]
     Indication: B-CELL LYMPHOMA
     Route: 042
     Dates: start: 20130410
  8. LEUCOVORIN [Suspect]
     Indication: B-CELL LYMPHOMA
     Dosage: 1950 MILLIGRAM DAILY;
     Route: 042
     Dates: start: 20130322
  9. MESNA [Concomitant]
     Indication: PROPHYLAXIS
  10. POTASSIUM CHLORIDE [Concomitant]
     Indication: CONSTIPATION
  11. SODIUM CHLORIDE [Concomitant]
     Indication: CONSTIPATION
     Dosage: 1 DOSAGE FORMS DAILY;
  12. SODIUM HYDROGEN CARBONATE [Concomitant]
     Indication: CONSTIPATION
     Dosage: 1 DOSAGE FORMS DAILY;
  13. GRANISETRON [Concomitant]
     Indication: ANTIEMETIC SUPPORTIVE CARE
     Dosage: .0714 MILLIGRAM DAILY;
     Route: 042
     Dates: start: 20130410
  14. KALIUM-NATRIUM TARTRATICUM [Concomitant]
     Indication: HYPERURICAEMIA
     Dates: start: 20130410
  15. SULFAMETHOXAZOLE W/TRIMETHOPRIM [Concomitant]
     Indication: PROPHYLAXIS
     Dates: start: 20130413
  16. ACICLOVIR [Concomitant]
     Indication: PROPHYLAXIS
     Dates: start: 20130410
  17. LEVOFLOXACIN [Concomitant]
     Indication: PROPHYLAXIS
     Route: 048
     Dates: start: 20130414
  18. RAMIPRIL [Concomitant]
     Indication: HYPERTENSION
     Dosage: 5 MILLIGRAM DAILY;
     Route: 048
  19. MACROGOL [Concomitant]
     Indication: CONSTIPATION
     Dosage: 1 DOSAGE FORMS DAILY;

REACTIONS (4)
  - Leukopenia [Recovered/Resolved]
  - Cystitis [Recovered/Resolved]
  - Thrombocytopenia [Recovered/Resolved]
  - Hypokalaemia [Recovered/Resolved]
